FAERS Safety Report 21223355 (Version 2)
Quarter: 2022Q3

REPORT INFORMATION
  Report Type: Spontaneous
  Country: IT (occurrence: IT)
  Receive Date: 20220817
  Receipt Date: 20220901
  Transmission Date: 20221026
  Serious: Yes (Other)
  Sender: FDA-Public Use
  Company Number: IT-OTSUKA-2022_040845

PATIENT
  Age: 54 Year
  Sex: Male

DRUGS (5)
  1. REXULTI [Suspect]
     Active Substance: BREXPIPRAZOLE
     Indication: Schizophrenia
     Dosage: 4 MG (FROM DAY 8)
     Route: 048
     Dates: start: 20220720
  2. REXULTI [Suspect]
     Active Substance: BREXPIPRAZOLE
     Dosage: 1 MG (FROM DAY 1 TO DAY 4)
     Route: 065
  3. REXULTI [Suspect]
     Active Substance: BREXPIPRAZOLE
     Dosage: 2 MG (FROM DAY 5 TO DAY 7)
     Route: 065
  4. LURASIDONE [Concomitant]
     Active Substance: LURASIDONE
     Indication: Schizophrenia
     Dosage: 74 MG
     Route: 065
     Dates: start: 202111
  5. VALPROATE SODIUM [Concomitant]
     Active Substance: VALPROATE SODIUM
     Indication: Schizophrenia
     Dosage: 500 MG
     Route: 065

REACTIONS (1)
  - Toxic skin eruption [Recovered/Resolved]

NARRATIVE: CASE EVENT DATE: 20220804
